FAERS Safety Report 22592266 (Version 1)
Quarter: 2023Q2

REPORT INFORMATION
  Report Type: Report from Study
  Country: US (occurrence: US)
  Receive Date: 20230613
  Receipt Date: 20230613
  Transmission Date: 20230722
  Serious: No
  Sender: FDA-Public Use
  Company Number: US-ETON PHARMACEUTICALS, INC-2023ETO000112

PATIENT

DRUGS (1)
  1. ALKINDI SPRINKLE [Suspect]
     Active Substance: HYDROCORTISONE
     Indication: Adrenogenital syndrome
     Dosage: EIGHT 0.5 MG CAPSULES BY MOUTH IN THE MORNING, FIVE 0.5 MG CAPSULES WITH LUNCH, AND FIVE 0.5 MG CAPS
     Route: 048

REACTIONS (3)
  - Product use complaint [Unknown]
  - Incorrect dose administered [Unknown]
  - No adverse event [Unknown]
